FAERS Safety Report 18062650 (Version 4)
Quarter: 2020Q3

REPORT INFORMATION
  Report Type: Spontaneous
  Country: US (occurrence: US)
  Receive Date: 20200723
  Receipt Date: 20200806
  Transmission Date: 20201103
  Serious: Yes (Other)
  Sender: FDA-Public Use
  Company Number: US-ACTELION-A-NJ2020-206759

PATIENT
  Age: 85 Year
  Sex: Female
  Weight: 72.56 kg

DRUGS (3)
  1. SILDENAFIL. [Concomitant]
     Active Substance: SILDENAFIL
  2. AMLODIPINE [Concomitant]
     Active Substance: AMLODIPINE BESYLATE
  3. OPSUMIT [Suspect]
     Active Substance: MACITENTAN
     Indication: PULMONARY ARTERIAL HYPERTENSION
     Dosage: 10 MG, QD
     Route: 048
     Dates: start: 20200607, end: 202007

REACTIONS (17)
  - Back pain [Unknown]
  - Muscular weakness [Unknown]
  - Oxygen therapy [Unknown]
  - Asthenia [Unknown]
  - Weight decreased [Unknown]
  - Pain [Unknown]
  - Oxygen consumption increased [Unknown]
  - Pica [Unknown]
  - Full blood count decreased [Unknown]
  - Chest pain [Unknown]
  - Headache [Unknown]
  - Presyncope [Not Recovered/Not Resolved]
  - Influenza like illness [Unknown]
  - Fatigue [Not Recovered/Not Resolved]
  - Unevaluable event [Unknown]
  - Lethargy [Unknown]
  - Decreased appetite [Unknown]

NARRATIVE: CASE EVENT DATE: 202006
